FAERS Safety Report 10180900 (Version 1)
Quarter: 2014Q2

REPORT INFORMATION
  Report Type: Spontaneous
  Country: US (occurrence: US)
  Receive Date: 20140519
  Receipt Date: 20140519
  Transmission Date: 20141212
  Serious: No
  Sender: FDA-Public Use
  Company Number: US-AMGEN INC.-USASP2014007792

PATIENT
  Age: 59 Year
  Sex: Female

DRUGS (6)
  1. PROLIA [Suspect]
     Indication: OSTEOPOROSIS POSTMENOPAUSAL
     Dosage: 60 MG, UNK
     Route: 065
  2. PRED FORTE [Concomitant]
     Indication: GLAUCOMA
  3. DORZOLAMIDE [Concomitant]
  4. BABY ASPIRIN [Concomitant]
  5. VITAMIN D                          /00107901/ [Concomitant]
     Dosage: 1000 UNIT, QD
  6. LIVALO [Concomitant]
     Indication: BLOOD CHOLESTEROL ABNORMAL

REACTIONS (7)
  - Nasopharyngitis [Recovering/Resolving]
  - Fatigue [Unknown]
  - Back pain [Unknown]
  - Pain [Not Recovered/Not Resolved]
  - Musculoskeletal stiffness [Not Recovered/Not Resolved]
  - Musculoskeletal pain [Unknown]
  - Pain in extremity [Unknown]
